FAERS Safety Report 6633859-8 (Version None)
Quarter: 2010Q1

REPORT INFORMATION
  Report Type: 
  Country: None (occurrence: None)
  Receive Date: 20100315
  Receipt Date: 20100308
  Transmission Date: 20100710
  Serious: Yes (Other)
  Sender: FDA-Public Use
  Company Number: GB-TEVA-226604ISR

PATIENT
  Sex: Female

DRUGS (2)
  1. MORPHINE [Suspect]
     Indication: DRUG USE FOR UNKNOWN INDICATION
  2. CAPECITABINE [Suspect]
     Indication: COLORECTAL CANCER

REACTIONS (1)
  - SUBARACHNOID HAEMORRHAGE [None]
